FAERS Safety Report 22153332 (Version 2)
Quarter: 2023Q4

REPORT INFORMATION
  Report Type: Spontaneous
  Country: JP (occurrence: JP)
  Receive Date: 20230329
  Receipt Date: 20231006
  Transmission Date: 20240109
  Serious: Yes (Hospitalization)
  Sender: FDA-Public Use
  Company Number: JP-AMGEN-JPNSP2023037334

PATIENT
  Age: 1 Year
  Sex: Female

DRUGS (10)
  1. IVABRADINE HYDROCHLORIDE [Suspect]
     Active Substance: IVABRADINE HYDROCHLORIDE
     Indication: Cardiac failure chronic
     Dosage: 0.04 MILLIGRAM/KILOGRAM, QD
     Route: 048
     Dates: start: 20220613, end: 20220615
  2. IVABRADINE HYDROCHLORIDE [Suspect]
     Active Substance: IVABRADINE HYDROCHLORIDE
     Dosage: 0.08 MILLIGRAM/KILOGRAM, QD
     Route: 048
     Dates: start: 20220616, end: 20220623
  3. IVABRADINE HYDROCHLORIDE [Suspect]
     Active Substance: IVABRADINE HYDROCHLORIDE
     Dosage: 0.12 MILLIGRAM/KILOGRAM, QD
     Route: 048
     Dates: start: 20220624, end: 20220626
  4. IVABRADINE HYDROCHLORIDE [Suspect]
     Active Substance: IVABRADINE HYDROCHLORIDE
     Dosage: 0.15 MILLIGRAM/KILOGRAM, QD
     Route: 048
     Dates: start: 20220627, end: 20220719
  5. IVABRADINE HYDROCHLORIDE [Suspect]
     Active Substance: IVABRADINE HYDROCHLORIDE
     Dosage: 0.3 MILLIGRAM/KILOGRAM, QD
     Route: 048
     Dates: start: 20220720, end: 20220803
  6. IVABRADINE HYDROCHLORIDE [Suspect]
     Active Substance: IVABRADINE HYDROCHLORIDE
     Dosage: 0.1 MILLIGRAM/KILOGRAM, QD
     Route: 048
     Dates: start: 20220804
  7. LANDIOLOL HYDROCHLORIDE [Suspect]
     Active Substance: LANDIOLOL HYDROCHLORIDE
     Indication: Tachyarrhythmia
     Dosage: 3 GAMMA (3UG/KG/H)
     Route: 040
     Dates: start: 20220628, end: 20220628
  8. LANDIOLOL HYDROCHLORIDE [Suspect]
     Active Substance: LANDIOLOL HYDROCHLORIDE
     Dosage: 1 GAMMA (1UG/KG/H)
     Route: 040
     Dates: start: 20220629, end: 20220630
  9. BISOPROLOL [Concomitant]
     Active Substance: BISOPROLOL\BISOPROLOL FUMARATE
     Indication: Product used for unknown indication
     Dosage: 0.1 MG/KG, EVERYDAY
     Route: 065
  10. BISOPROLOL [Concomitant]
     Active Substance: BISOPROLOL\BISOPROLOL FUMARATE
     Dosage: 0.1 MG/KG, EVERYDAY
     Route: 048
     Dates: start: 20220629

REACTIONS (3)
  - Conduction disorder [Unknown]
  - Viral infection [Unknown]
  - Inappropriate schedule of product administration [Unknown]

NARRATIVE: CASE EVENT DATE: 20220628
